FAERS Safety Report 5909703-0 (Version None)
Quarter: 2008Q4

REPORT INFORMATION
  Report Type: 
  Country: None (occurrence: None)
  Receive Date: 20081007
  Receipt Date: 20081001
  Transmission Date: 20090506
  Serious: Yes (Hospitalization)
  Sender: FDA-Public Use
  Company Number: JP-JNJFOC-20080906695

PATIENT
  Age: 82 Year
  Sex: Male

DRUGS (13)
  1. ITRIZOLE [Suspect]
     Indication: OESOPHAGEAL CANDIDIASIS
     Route: 048
  2. LASIX [Concomitant]
     Route: 065
  3. ARTIST [Concomitant]
     Route: 048
  4. HOKUNALIN TAPE [Concomitant]
     Route: 061
  5. ALDACTONE [Concomitant]
     Route: 048
  6. ARGAMATE [Concomitant]
     Route: 048
  7. FOIPAN [Concomitant]
     Route: 048
  8. MUCOSOLVAN L [Concomitant]
     Route: 048
  9. URSO 250 [Concomitant]
     Route: 048
  10. BIOFERMIN [Concomitant]
     Route: 048
  11. MAGMITT [Concomitant]
     Route: 048
  12. NEUROTROPIN [Concomitant]
     Route: 048
  13. CYANOCOBALAMIN [Concomitant]
     Route: 048

REACTIONS (3)
  - ATRIOVENTRICULAR BLOCK [None]
  - CEREBRAL INFARCTION [None]
  - SICK SINUS SYNDROME [None]
